FAERS Safety Report 7010123-9 (Version None)
Quarter: 2010Q3

REPORT INFORMATION
  Report Type: 
  Country: None (occurrence: None)
  Receive Date: 20100923
  Receipt Date: 20100913
  Transmission Date: 20110219
  Serious: Yes (Hospitalization)
  Sender: FDA-Public Use
  Company Number: FR-NOVOPROD-311913

PATIENT
  Age: 88 Year
  Sex: Female

DRUGS (9)
  1. NOVONORM [Suspect]
     Indication: TYPE 2 DIABETES MELLITUS
     Dosage: UKNOWN/PO
     Route: 048
     Dates: start: 20100601, end: 20100609
  2. AUGMENTIN '125' [Suspect]
     Dosage: 1 G, TID
     Route: 048
     Dates: start: 20100606, end: 20100608
  3. LANTUS [Suspect]
     Dosage: UNK
     Route: 058
     Dates: start: 20100601, end: 20100606
  4. INNOHEP                            /01707902/ [Suspect]
     Dosage: 0.5 ML, QD
     Route: 058
     Dates: start: 20100604, end: 20100608
  5. LERCANIDIPINE [Suspect]
     Dosage: 10 MG, UNK
     Route: 048
     Dates: end: 20100609
  6. ZYLORIC                            /00003301/ [Suspect]
     Dosage: UNK
     Route: 048
     Dates: end: 20100609
  7. ESOMEPRAZOLE MAGNESIUM [Suspect]
     Dosage: 20 MG, QD
     Route: 048
     Dates: end: 20100609
  8. FORLAX [Suspect]
     Dosage: 3 DF, QD
     Dates: end: 20100609
  9. CIPROFLOXACIN HCL [Suspect]
     Dosage: 250 MG, BID
     Route: 048
     Dates: start: 20100604, end: 20100605

REACTIONS (2)
  - HYPOTENSION [None]
  - RASH GENERALISED [None]
